FAERS Safety Report 20722149 (Version 1)
Quarter: 2022Q2

REPORT INFORMATION
  Report Type: Other
  Country: US (occurrence: None)
  Receive Date: 20220418
  Receipt Date: 20220418
  Transmission Date: 20220721
  Serious: Yes (Other)
  Sender: FDA-Public Use
  Company Number: US-ROCHE-3068201

PATIENT
  Age: 29 Year
  Sex: Male

DRUGS (11)
  1. TOCILIZUMAB [Suspect]
     Active Substance: TOCILIZUMAB
     Indication: Rheumatoid arthritis
     Route: 058
  2. ETANERCEPT [Concomitant]
     Active Substance: ETANERCEPT
  3. BARICITINIB [Concomitant]
     Active Substance: BARICITINIB
  4. ADALIMUMAB [Concomitant]
     Active Substance: ADALIMUMAB
  5. PREDNISOLONE [Concomitant]
     Active Substance: PREDNISOLONE
  6. OMEPRAZOLE [Concomitant]
     Active Substance: OMEPRAZOLE
  7. METHOTREXATE [Concomitant]
     Active Substance: METHOTREXATE
  8. FOLIC ACID [Concomitant]
     Active Substance: FOLIC ACID
  9. PIPERACILLIN SODIUM\TAZOBACTAM SODIUM [Concomitant]
     Active Substance: PIPERACILLIN SODIUM\TAZOBACTAM SODIUM
  10. GENTAMICIN [Concomitant]
     Active Substance: GENTAMICIN
  11. METHOTREXATE [Concomitant]
     Active Substance: METHOTREXATE

REACTIONS (1)
  - Small intestinal perforation [Recovered/Resolved]
